FAERS Safety Report 17630827 (Version 1)
Quarter: 2020Q2

REPORT INFORMATION
  Report Type: Spontaneous
  Country: US (occurrence: US)
  Receive Date: 20200406
  Receipt Date: 20200406
  Transmission Date: 20200713
  Serious: Yes (Other)
  Sender: FDA-Public Use
  Company Number: US-JNJFOC-20200341244

PATIENT
  Age: 71 Year
  Sex: Male
  Weight: 89.89 kg

DRUGS (1)
  1. XARELTO [Suspect]
     Active Substance: RIVAROXABAN
     Indication: THROMBOSIS
     Route: 048
     Dates: start: 201901

REACTIONS (4)
  - Thrombosis [Not Recovered/Not Resolved]
  - Peripheral swelling [Not Recovered/Not Resolved]
  - Limb injury [Not Recovered/Not Resolved]
  - Tooth extraction [Recovered/Resolved]

NARRATIVE: CASE EVENT DATE: 202002
